FAERS Safety Report 8464773-3 (Version None)
Quarter: 2012Q2

REPORT INFORMATION
  Report Type: 
  Country: None (occurrence: None)
  Receive Date: 20120619
  Receipt Date: 20120604
  Transmission Date: 20120825
  Serious: Yes (Hospitalization)
  Sender: FDA-Public Use
  Company Number: DSJ-2012

PATIENT
  Age: 9 Decade
  Sex: Female

DRUGS (9)
  1. BENICAR [Suspect]
     Indication: HYPERTENSION
     Dosage: 20 MG (20 MG, 1 IN 1 D), PER ORAL
     Route: 048
     Dates: start: 20060101
  2. ACETYLSALICYLIC ACID SRT [Concomitant]
  3. LORATADINE [Concomitant]
  4. GLUCOSAMINE/CHONDROITIN (GLUCOSAMINE, CHONDROITIN SULFATE) [Concomitant]
  5. CALCIUM CARBONATE [Concomitant]
  6. ISOSORBIDE [Concomitant]
  7. HYDROXYCHLOROQUINE SULFATE [Concomitant]
  8. CYCLOBENZAPRINE [Concomitant]
  9. PANTOPRAZOLE [Concomitant]

REACTIONS (3)
  - PARAESTHESIA [None]
  - DIZZINESS [None]
  - CARDIAC DISORDER [None]
